FAERS Safety Report 4374799-7 (Version None)
Quarter: 2004Q2

REPORT INFORMATION
  Report Type: 
  Country: None (occurrence: None)
  Receive Date: 20040604
  Receipt Date: 20040524
  Transmission Date: 20050107
  Serious: Yes (Hospitalization)
  Sender: FDA-Public Use
  Company Number: 2004031324

PATIENT
  Age: 62 Year
  Sex: Female

DRUGS (4)
  1. LIPITOR [Suspect]
     Indication: HYPERLIPIDAEMIA
     Dosage: 10 MG (1 IN 1 D), ORAL
     Route: 048
     Dates: start: 20040407, end: 20040419
  2. LOXOPROFEN SODIUM (LOXOPROFEN SODIUM) [Suspect]
     Indication: BACK PAIN
     Dosage: 60 MG ORAL
     Route: 048
     Dates: start: 20010101, end: 20040427
  3. TABRON (ASCORBIC ACID, CALCIUM PANTOTHENATE, CYANOCOBALAMIN, DOCUSATE [Concomitant]
  4. ZOPICLONE (ZOPICLONE) [Concomitant]

REACTIONS (6)
  - BLOOD ALKALINE PHOSPHATASE INCREASED [None]
  - BLOOD GLUCOSE INCREASED [None]
  - INTERSTITIAL LUNG DISEASE [None]
  - LYMPHOCYTE STIMULATION TEST POSITIVE [None]
  - OBSTRUCTIVE AIRWAYS DISORDER [None]
  - PNEUMONITIS [None]
